FAERS Safety Report 12312764 (Version 1)
Quarter: 2016Q2

REPORT INFORMATION
  Report Type: Spontaneous
  Country: US (occurrence: None)
  Receive Date: 20160427
  Receipt Date: 20160427
  Transmission Date: 20160815
  Serious: No
  Sender: FDA-Public Use
  Company Number: None

PATIENT

DRUGS (1)
  1. CEPHALEXIN. [Suspect]
     Active Substance: CEPHALEXIN
     Indication: LYMPHADENOPATHY
     Dates: start: 20160423, end: 20160425

REACTIONS (1)
  - Migraine [None]

NARRATIVE: CASE EVENT DATE: 20160423
